FAERS Safety Report 5748818-7 (Version None)
Quarter: 2008Q2

REPORT INFORMATION
  Report Type: 
  Country: None (occurrence: None)
  Receive Date: 20080521
  Receipt Date: 20080509
  Transmission Date: 20081010
  Serious: Yes (Other)
  Sender: FDA-Public Use
  Company Number: 100#03#2008-02638

PATIENT
  Age: 22 Year
  Sex: Female

DRUGS (1)
  1. CITALOPRAM HYDROBROMIDE [Suspect]
     Indication: DEPRESSION
     Dosage: 20 MG
     Route: 048
     Dates: start: 20080403, end: 20080418

REACTIONS (5)
  - ANXIETY [None]
  - PALPITATIONS [None]
  - PARANOIA [None]
  - PSYCHOTIC DISORDER [None]
  - VOMITING [None]
